FAERS Safety Report 12094171 (Version 12)
Quarter: 2017Q4

REPORT INFORMATION
  Report Type: Spontaneous
  Country: US (occurrence: US)
  Receive Date: 20160219
  Receipt Date: 20171102
  Transmission Date: 20180320
  Serious: Yes (Hospitalization)
  Sender: FDA-Public Use
  Company Number: US-ACTELION PHARMACEUTICALS US, INC.-A-NJ2016-131186

PATIENT
  Age: 64 Year
  Sex: Female
  Weight: 53.61 kg

DRUGS (5)
  1. OPSUMIT [Suspect]
     Active Substance: MACITENTAN
     Indication: PULMONARY ARTERIAL HYPERTENSION
     Dosage: 10 MG, QD
     Route: 048
     Dates: start: 2014
  2. COUMADIN [Concomitant]
     Active Substance: WARFARIN SODIUM
  3. FLOLAN [Suspect]
     Active Substance: EPOPROSTENOL SODIUM
     Indication: PULMONARY ARTERIAL HYPERTENSION
     Dosage: 70 NG/KG, PER MIN
     Route: 042
     Dates: start: 1995
  4. ADEMPAS [Suspect]
     Active Substance: RIOCIGUAT
     Indication: PRODUCT USED FOR UNKNOWN INDICATION
     Dosage: 0.5 MG, TID
     Route: 065
  5. ADCIRCA [Concomitant]
     Active Substance: TADALAFIL

REACTIONS (15)
  - Tachycardia [Unknown]
  - Stress [Not Recovered/Not Resolved]
  - Device issue [Unknown]
  - Device related infection [Unknown]
  - Malaise [Recovering/Resolving]
  - Therapy non-responder [Unknown]
  - Hypertension [Unknown]
  - Heart rate irregular [Unknown]
  - Bronchitis [Unknown]
  - Pain in jaw [Unknown]
  - Pneumonia [Unknown]
  - International normalised ratio increased [Unknown]
  - Device occlusion [Not Recovered/Not Resolved]
  - Flushing [Unknown]
  - Depression [Unknown]
